FAERS Safety Report 8483437-3 (Version None)
Quarter: 2012Q3

REPORT INFORMATION
  Report Type: 
  Country: None (occurrence: None)
  Receive Date: 20120702
  Receipt Date: 20120701
  Transmission Date: 20120928
  Serious: No
  Sender: FDA-Public Use
  Company Number: US-TEVA-346134USA

PATIENT
  Sex: Female
  Weight: 70.824 kg

DRUGS (2)
  1. PLAN B ONE-STEP [Suspect]
     Indication: POST COITAL CONTRACEPTION
     Dosage: 1.5 MILLIGRAM;
     Route: 048
     Dates: start: 20120529, end: 20120529
  2. VITAMIN TAB [Concomitant]
     Indication: VITAMIN SUPPLEMENTATION

REACTIONS (2)
  - PREGNANCY AFTER POST COITAL CONTRACEPTION [None]
  - DRUG INEFFECTIVE [None]
